FAERS Safety Report 8884457 (Version 1)
Quarter: 2012Q4

REPORT INFORMATION
  Report Type: 
  Country: US (occurrence: US)
  Receive Date: 20121102
  Receipt Date: 20121102
  Transmission Date: 20130627
  Serious: No
  Sender: FDA-Public Use
  Company Number: US-ASTRAZENECA-2012SE18930

PATIENT
  Age: 66 Year
  Sex: Female

DRUGS (3)
  1. CRESTOR [Suspect]
     Indication: HYPERCHOLESTEROLAEMIA
     Route: 048
  2. CARTIA [Concomitant]
     Indication: HYPERTENSION
  3. MICARDIS [Concomitant]
     Indication: HYPERTENSION

REACTIONS (3)
  - Tachycardia [Unknown]
  - Malaise [Unknown]
  - Hypertension [Unknown]
